FAERS Safety Report 9190188 (Version 1)
Quarter: 2013Q1

REPORT INFORMATION
  Report Type: Spontaneous
  Country: DE (occurrence: DE)
  Receive Date: 20130326
  Receipt Date: 20130326
  Transmission Date: 20140127
  Serious: Yes (Other)
  Sender: FDA-Public Use
  Company Number: DE-ASTELLAS-2013EU002722

PATIENT
  Sex: Female

DRUGS (1)
  1. PROGRAF [Suspect]
     Indication: OCCUPATIONAL EXPOSURE TO PRODUCT
     Dosage: UNK
     Route: 065

REACTIONS (2)
  - Occupational exposure to product [Unknown]
  - Panophthalmitis [Unknown]
